FAERS Safety Report 4967797-3 (Version None)
Quarter: 2006Q2

REPORT INFORMATION
  Report Type: 
  Country: None (occurrence: None)
  Receive Date: 20060410
  Receipt Date: 20050113
  Transmission Date: 20061013
  Serious: Yes (Hospitalization)
  Sender: FDA-Public Use
  Company Number: US-MERCK-0501USA02244

PATIENT
  Age: 47 Year
  Sex: Female

DRUGS (1)
  1. VIOXX [Suspect]
     Indication: ARTHRITIS
     Route: 048
     Dates: start: 20010101, end: 20030101

REACTIONS (4)
  - CHOLECYSTECTOMY [None]
  - GALLBLADDER DISORDER [None]
  - MYOCARDIAL INFARCTION [None]
  - THROMBOSIS [None]
